FAERS Safety Report 15334905 (Version 1)
Quarter: 2018Q3

REPORT INFORMATION
  Report Type: Spontaneous
  Country: US (occurrence: US)
  Receive Date: 20180830
  Receipt Date: 20180830
  Transmission Date: 20181010
  Serious: Yes (Other)
  Sender: FDA-Public Use
  Company Number: US-BECTON DICKINSON-2018BDN00291

PATIENT

DRUGS (3)
  1. POVIDONE?IODINE. [Suspect]
     Active Substance: POVIDONE-IODINE
     Dosage: UNK, ONCE
     Route: 061
  2. CHLORHEXIDINE [Suspect]
     Active Substance: CHLORHEXIDINE
     Indication: ANTIBIOTIC PROPHYLAXIS
     Route: 061
  3. POVIDONE?IODINE. [Suspect]
     Active Substance: POVIDONE-IODINE
     Indication: ANTIBIOTIC PROPHYLAXIS
     Dosage: UNK, ONCE
     Route: 061

REACTIONS (1)
  - Peritonitis bacterial [Unknown]
